FAERS Safety Report 8281075-9 (Version None)
Quarter: 2012Q2

REPORT INFORMATION
  Report Type: 
  Country: None (occurrence: None)
  Receive Date: 20120412
  Receipt Date: 20120330
  Transmission Date: 20120825
  Serious: Yes (Hospitalization, Other)
  Sender: FDA-Public Use
  Company Number: DE-MYLANLABS-2011S1003903

PATIENT
  Age: 82 Year
  Sex: Female
  Weight: 90 kg

DRUGS (6)
  1. BROMAZEPAM [Suspect]
     Indication: SUICIDE ATTEMPT
     Route: 048
     Dates: start: 20110225, end: 20110225
  2. METOPROLOL TARTRATE [Suspect]
     Indication: SUICIDE ATTEMPT
     Route: 048
     Dates: start: 20110225, end: 20110225
  3. RAMIPRIL [Suspect]
     Indication: SUICIDE ATTEMPT
     Route: 048
     Dates: start: 20110225, end: 20110225
  4. SIMVASTATIN [Suspect]
     Indication: SUICIDE ATTEMPT
     Route: 048
     Dates: start: 20110225, end: 20110225
  5. IBUPROFEN [Suspect]
     Indication: SUICIDE ATTEMPT
     Route: 048
     Dates: start: 20110225, end: 20110225
  6. LIMPTAR [Suspect]
     Indication: SUICIDE ATTEMPT
     Route: 048
     Dates: start: 20110225, end: 20110225

REACTIONS (5)
  - AGITATION [None]
  - TREMOR [None]
  - SUICIDE ATTEMPT [None]
  - CIRCULATORY COLLAPSE [None]
  - HYPOTENSION [None]
